FAERS Safety Report 22171741 (Version 1)
Quarter: 2023Q2

REPORT INFORMATION
  Report Type: Spontaneous
  Country: US (occurrence: US)
  Receive Date: 20230404
  Receipt Date: 20230404
  Transmission Date: 20230722
  Serious: No
  Sender: FDA-Public Use
  Company Number: US-GALDERMA-US2023003181

PATIENT

DRUGS (6)
  1. PROACTIV MD ADAPALENE ACNE TREATMENT [Suspect]
     Active Substance: ADAPALENE
     Indication: Skin hyperpigmentation
     Dosage: 1 DOSAGE FORM, DAB APPLICATION, NOT VERY OFTEN
     Route: 061
     Dates: start: 2022, end: 2022
  2. PROACTIV CLEAR SKIN SPF 30 [Concomitant]
     Active Substance: AVOBENZONE\OCTISALATE\OCTOCRYLENE
     Indication: Skin hyperpigmentation
     Dosage: 1 DOSAGE FORM, 2 OR MORE TIMES A MONTH, DIME OR NICKLE
     Route: 061
     Dates: start: 2022, end: 2022
  3. Proactiv MD Ultra Gentle Cleanser [Concomitant]
     Indication: Skin hyperpigmentation
     Dosage: 1 DOSAGE FORM, 2 OR MORE TIMES A MONTH, DIME OR NICKLE SIZE
     Route: 061
     Dates: start: 2022, end: 2022
  4. Proactiv MD Ultra Hydrating Moisturizer [Concomitant]
     Indication: Skin hyperpigmentation
     Dosage: 1 DOSAGE FORM, 2 OR MORE TIMES A MONTH, DIME OR NICKLE SIZE
     Route: 061
     Dates: start: 2022, end: 2022
  5. Proactiv Post Acne Dark Mark Relief [Concomitant]
     Indication: Skin hyperpigmentation
     Dosage: 1 DOSAGE FORM, 2 OR MORE TIMES A MONTH, DIME OR NICKLE SIZE
     Route: 061
  6. Proactiv Post Acne Scar Gel [Concomitant]
     Indication: Skin hyperpigmentation
     Dosage: 1 DOSAGE FORM, 2 OR MORE TIMES A MONTH, DIME OR NICKLE SIZE
     Route: 061

REACTIONS (3)
  - Skin burning sensation [Recovered/Resolved]
  - Product use in unapproved indication [Recovered/Resolved]
  - Product use issue [Recovered/Resolved]

NARRATIVE: CASE EVENT DATE: 20220101
